FAERS Safety Report 6858085-9 (Version None)
Quarter: 2010Q3

REPORT INFORMATION
  Report Type: 
  Country: None (occurrence: None)
  Receive Date: 20100719
  Receipt Date: 20080509
  Transmission Date: 20110219
  Serious: No
  Sender: FDA-Public Use
  Company Number: US-PFIZER INC-2008009025

PATIENT
  Age: 44 Year
  Sex: Female
  Weight: 74.5 kg

DRUGS (2)
  1. CHANTIX [Suspect]
     Indication: SMOKING CESSATION THERAPY
     Dates: start: 20070901
  2. THYROID TAB [Concomitant]

REACTIONS (1)
  - DRUG EFFECT DECREASED [None]
